FAERS Safety Report 12130116 (Version 1)
Quarter: 2016Q1

REPORT INFORMATION
  Report Type: Other
  Country: US (occurrence: US)
  Receive Date: 20160229
  Receipt Date: 20160229
  Transmission Date: 20160526
  Serious: No
  Sender: FDA-Public Use
  Company Number: US-ACORDA-ACO_24500_2010

PATIENT
  Age: 59 Year
  Sex: Male
  Weight: 79 kg

DRUGS (7)
  1. AMPYRA [Suspect]
     Active Substance: DALFAMPRIDINE
     Indication: GAIT DISTURBANCE
  2. NIFEDIPINE. [Concomitant]
     Active Substance: NIFEDIPINE
     Dosage: DF
  3. DIAZEPAM. [Concomitant]
     Active Substance: DIAZEPAM
     Dosage: DF
  4. BACLOFEN. [Concomitant]
     Active Substance: BACLOFEN
     Dosage: DF
  5. LISINOPRIL. [Concomitant]
     Active Substance: LISINOPRIL
     Dosage: DF
  6. ZOLOFT [Concomitant]
     Active Substance: SERTRALINE HYDROCHLORIDE
     Dosage: DF
  7. AMPYRA [Suspect]
     Active Substance: DALFAMPRIDINE
     Indication: MULTIPLE SCLEROSIS
     Dosage: 10 MG, BID
     Route: 048
     Dates: start: 20100726, end: 20100911

REACTIONS (1)
  - Neck pain [Recovered/Resolved]

NARRATIVE: CASE EVENT DATE: 20100726
